FAERS Safety Report 10098587 (Version 1)
Quarter: 2014Q2

REPORT INFORMATION
  Report Type: Spontaneous
  Country: CN (occurrence: None)
  Receive Date: 20140421
  Receipt Date: 20140421
  Transmission Date: 20141212
  Serious: Yes (Death, Hospitalization)
  Sender: FDA-Public Use
  Company Number: 7282960

PATIENT
  Age: 2 Day
  Sex: Female

DRUGS (1)
  1. EUTHYROX (LEVOTHYROXINE SODIUM) (LEVOTHYROXINE SODIUM) [Suspect]
     Indication: HYPOTHYROIDISM
     Dosage: PRODUCT TAKEN BY MOTHER

REACTIONS (8)
  - Respiratory failure [None]
  - Disseminated intravascular coagulation [None]
  - Inborn error of metabolism [None]
  - Low birth weight baby [None]
  - Maternal drugs affecting foetus [None]
  - Vomiting [None]
  - Metabolic acidosis [None]
  - Hyperammonaemia [None]
